FAERS Safety Report 20987627 (Version 1)
Quarter: 2022Q2

REPORT INFORMATION
  Report Type: Spontaneous
  Country: DE (occurrence: None)
  Receive Date: 20220621
  Receipt Date: 20220621
  Transmission Date: 20220720
  Serious: Yes (Other)
  Sender: FDA-Public Use
  Company Number: DE-ALM-HQ-DE-2022-1184

PATIENT
  Age: 82 Year
  Sex: Male

DRUGS (1)
  1. KLISYRI [Suspect]
     Active Substance: TIRBANIBULIN

REACTIONS (2)
  - Squamous cell carcinoma [Not Recovered/Not Resolved]
  - Therapeutic product effect decreased [Not Recovered/Not Resolved]
